FAERS Safety Report 14165749 (Version 23)
Quarter: 2023Q1

REPORT INFORMATION
  Report Type: Spontaneous
  Country: GB (occurrence: GB)
  Receive Date: 20171107
  Receipt Date: 20230322
  Transmission Date: 20230418
  Serious: Yes (Other)
  Sender: FDA-Public Use
  Company Number: GB-EMA-DD-20171213-SGALIPALLIP-142750

PATIENT
  Age: 17 Year
  Sex: Female
  Weight: 57 kg

DRUGS (56)
  1. TEMOZOLOMIDE [Suspect]
     Active Substance: TEMOZOLOMIDE
     Indication: Desmoplastic small round cell tumour
     Dosage: 3 LINES OF CHEMOTHERAPY
     Route: 065
  2. TEMOZOLOMIDE [Suspect]
     Active Substance: TEMOZOLOMIDE
     Indication: Malignant neoplasm progression
  3. ACTINOMYCIN D [Suspect]
     Active Substance: DACTINOMYCIN
     Indication: Desmoplastic small round cell tumour
     Dosage: 4 CYCLES ; CYCLICAL
     Route: 042
  4. ACTINOMYCIN D [Suspect]
     Active Substance: DACTINOMYCIN
     Indication: Malignant neoplasm progression
     Dosage: UNK, CYCLICAL,( IVA 5 CYCLE);
     Route: 042
  5. CYCLOPHOSPHAMIDE [Suspect]
     Active Substance: CYCLOPHOSPHAMIDE
     Indication: Desmoplastic small round cell tumour
     Dosage: 3 LINES OF CHEMOTHERAPY, 4 CYCLES, MAINTENANCE THERAPY ; CYCLICAL
     Route: 065
  6. CYCLOPHOSPHAMIDE [Suspect]
     Active Substance: CYCLOPHOSPHAMIDE
     Indication: Malignant neoplasm progression
     Dosage: 4 CYCLES, MAINTENANCE THERAPY ; CYCLICAL
     Route: 065
  7. CYCLOPHOSPHAMIDE [Suspect]
     Active Substance: CYCLOPHOSPHAMIDE
     Dosage: UNK,(4 LINES OF CHEMOTHERAPY)
     Route: 065
  8. CYCLOPHOSPHAMIDE [Suspect]
     Active Substance: CYCLOPHOSPHAMIDE
     Dosage: UNK, 3 LINES OF CHEMOTHERAPY
     Route: 065
  9. DOCETAXEL [Suspect]
     Active Substance: DOCETAXEL
     Indication: Desmoplastic small round cell tumour
     Dosage: 3 LINES OF CHEMOTHERAPY
     Route: 050
  10. DOCETAXEL [Suspect]
     Active Substance: DOCETAXEL
     Indication: Malignant neoplasm progression
  11. GEMCITABINE [Suspect]
     Active Substance: GEMCITABINE
     Indication: Desmoplastic small round cell tumour
     Dosage: UNK 3 LINES OF CHEMOTHERAPY
     Route: 065
  12. GEMCITABINE [Suspect]
     Active Substance: GEMCITABINE
     Indication: Malignant neoplasm progression
  13. IFOSFAMIDE [Suspect]
     Active Substance: IFOSFAMIDE
     Indication: Desmoplastic small round cell tumour
     Dosage: 1 IU, CYCLE 4 CYCLES CYCLICAL
     Route: 065
  14. IFOSFAMIDE [Suspect]
     Active Substance: IFOSFAMIDE
     Dosage: 1 UNIT,IVA 5 CYCLES ; CYCLICAL
     Route: 050
  15. IFOSFAMIDE [Suspect]
     Active Substance: IFOSFAMIDE
     Dosage: 1 IU, CYCLE,5 CYCLES
     Route: 065
  16. ONIVYDE [Suspect]
     Active Substance: IRINOTECAN HYDROCHLORIDE
     Indication: Malignant neoplasm progression
     Dosage: 3 LINES OF CHEMOTHERAPY
     Route: 050
  17. ONIVYDE [Suspect]
     Active Substance: IRINOTECAN HYDROCHLORIDE
     Indication: Off label use
  18. ONIVYDE [Suspect]
     Active Substance: IRINOTECAN HYDROCHLORIDE
     Indication: Desmoplastic small round cell tumour
  19. TOPOTECAN [Suspect]
     Active Substance: TOPOTECAN HYDROCHLORIDE
     Indication: Desmoplastic small round cell tumour
     Dosage: 3 LINES OF CHEMOTHERAPY
     Route: 065
  20. TOPOTECAN [Suspect]
     Active Substance: TOPOTECAN HYDROCHLORIDE
     Indication: Malignant neoplasm progression
  21. VINCRISTINE [Suspect]
     Active Substance: VINCRISTINE
     Indication: Desmoplastic small round cell tumour
     Dosage: 1 INTERNATIONAL UNIT, CYCLICAL,(1 INTERNATIONAL UNIT, CYCLE); CYCLICAL
     Route: 042
  22. VINCRISTINE [Suspect]
     Active Substance: VINCRISTINE
     Indication: Malignant neoplasm progression
     Dosage: 1 UNIT, 4 CYCLES ; CYCLICAL
     Route: 042
  23. VINCRISTINE [Suspect]
     Active Substance: VINCRISTINE
     Dosage: 1 UNIT,5 CYCLES ; THREE LINES OF CHEMOTHERAPY
     Route: 050
  24. VINORELBINE TARTRATE [Suspect]
     Active Substance: VINORELBINE TARTRATE
     Indication: Desmoplastic small round cell tumour
     Dosage: 1 INTERNATIONAL UNIT, 4 CYCLES (1 IU, CYCLE 4 CYCLES, CYCLICAL
     Route: 065
  25. VINORELBINE TARTRATE [Suspect]
     Active Substance: VINORELBINE TARTRATE
     Indication: Malignant neoplasm progression
     Dosage: UNK, CYCLICAL
     Route: 050
  26. DOXORUBICIN HYDROCHLORIDE [Suspect]
     Active Substance: DOXORUBICIN HYDROCHLORIDE
     Indication: Desmoplastic small round cell tumour
     Dosage: UNK
     Route: 050
  27. ONDANSETRON [Suspect]
     Active Substance: ONDANSETRON
     Indication: Product used for unknown indication
     Dosage: 8 MG, PRN
     Route: 065
  28. ONDANSETRON [Suspect]
     Active Substance: ONDANSETRON
     Indication: Product used for unknown indication
  29. IRINOTECAN SUCROSOFATE [Suspect]
     Active Substance: IRINOTECAN SUCROSOFATE
     Indication: Product used for unknown indication
     Dosage: UNK 3 LINES OF CHEMOTHERAPY
     Route: 050
  30. IRINOTECAN SUCROSOFATE [Suspect]
     Active Substance: IRINOTECAN SUCROSOFATE
     Indication: Malignant neoplasm progression
  31. IRINOTECAN SUCROSOFATE [Suspect]
     Active Substance: IRINOTECAN SUCROSOFATE
     Indication: Desmoplastic small round cell tumour
  32. DACTINOMYCIN [Suspect]
     Active Substance: DACTINOMYCIN
     Indication: Desmoplastic small round cell tumour
     Dosage: 4 CYCLES
     Route: 042
  33. DACTINOMYCIN [Suspect]
     Active Substance: DACTINOMYCIN
     Dosage: 5 CYCLES
     Route: 042
  34. DOXORUBICIN [Suspect]
     Active Substance: DOXORUBICIN
     Indication: Desmoplastic small round cell tumour
     Dosage: 1 UNIT, 4 CYCLES ; CYCLICAL
     Route: 065
  35. DOXORUBICIN [Suspect]
     Active Substance: DOXORUBICIN
     Indication: Malignant neoplasm progression
  36. DOXORUBICIN [Suspect]
     Active Substance: DOXORUBICIN
     Indication: Desmoplastic small round cell tumour
  37. SULFAMETHOXAZOLE\TRIMETHOPRIM [Suspect]
     Active Substance: SULFAMETHOXAZOLE\TRIMETHOPRIM
     Indication: Product used for unknown indication
     Dosage: 480 MG, BID, SATURDAY AND SUNDAY
     Route: 065
  38. SULFAMETHOXAZOLE\TRIMETHOPRIM [Suspect]
     Active Substance: SULFAMETHOXAZOLE\TRIMETHOPRIM
     Dosage: 960 MILLIGRAM,(480 MG, BID, SATURDAY AND SUNDAY);
     Route: 050
  39. CYCLIZINE [Suspect]
     Active Substance: CYCLIZINE
     Indication: Product used for unknown indication
     Dosage: UNK
     Route: 065
  40. CYCLIZINE [Suspect]
     Active Substance: CYCLIZINE
     Dosage: 50 MG, PRN (AS REQUIRED);
     Route: 050
  41. IRINOTECAN [Suspect]
     Active Substance: IRINOTECAN
     Indication: Desmoplastic small round cell tumour
     Dosage: 3 LINES OF CHEMOTHERAPY
     Route: 065
  42. IRINOTECAN [Suspect]
     Active Substance: IRINOTECAN
     Indication: Malignant neoplasm progression
     Dosage: UNK 3 LINES OF CHEMOTHERAPY; ;
     Route: 050
  43. MELATONIN [Suspect]
     Active Substance: MELATONIN
     Indication: Product used for unknown indication
     Dosage: 6 MG, QD (1/DAY)
     Route: 065
  44. VINORELBINE [Suspect]
     Active Substance: VINORELBINE TARTRATE
     Indication: Desmoplastic small round cell tumour
     Dosage: 1 INTERNATIONAL UNIT, 4 CYCLES (1 IU, CYCLE 4 CYCLES,CYCLICAL )
     Route: 065
  45. VINORELBINE [Suspect]
     Active Substance: VINORELBINE TARTRATE
     Dosage: UNK, CYCLICAL
     Route: 065
  46. MELATONIN [Concomitant]
     Active Substance: MELATONIN
     Indication: Product used for unknown indication
     Dosage: 6 MILLIGRAM, QD
     Route: 065
     Dates: start: 2016
  47. MELATONIN [Concomitant]
     Active Substance: MELATONIN
     Indication: Product used for unknown indication
     Dosage: 6 MG, UNK
     Route: 065
  48. CYCLIZINE [Concomitant]
     Active Substance: CYCLIZINE
     Indication: Product used for unknown indication
     Dosage: 50 MG, PRN (AS REQUIRED);
     Route: 065
  49. CYCLIZINE [Concomitant]
     Active Substance: CYCLIZINE
     Indication: Product used for unknown indication
  50. PAZOPANIB [Concomitant]
     Active Substance: PAZOPANIB
     Indication: Product used for unknown indication
     Dosage: UNK
     Route: 065
  51. PAZOPANIB [Concomitant]
     Active Substance: PAZOPANIB
     Indication: Product used for unknown indication
  52. SULFAMETHOXAZOLE [Concomitant]
     Active Substance: SULFAMETHOXAZOLE
  53. ACETAMINOPHEN [Concomitant]
     Active Substance: ACETAMINOPHEN
     Dosage: UNK
     Route: 065
  54. DOXORUBICIN [Concomitant]
     Active Substance: DOXORUBICIN
     Indication: Desmoplastic small round cell tumour
     Dosage: 1 INTERNATIONAL UNIT,(1 UNIT, 4 CYCLES ; CYCLICAL ()); CYCLICAL
     Route: 050
  55. PAZOPANIB HYDROCHLORIDE [Concomitant]
     Active Substance: PAZOPANIB HYDROCHLORIDE
     Indication: Product used for unknown indication
     Dosage: UNK
     Route: 065
  56. SULFAMETHOXAZOLE\TRIMETHOPRIM [Concomitant]
     Active Substance: SULFAMETHOXAZOLE\TRIMETHOPRIM
     Indication: Product used for unknown indication
     Dosage: 480 MG ON SATURDAY AND SUNDAY
     Route: 065

REACTIONS (13)
  - Desmoplastic small round cell tumour [Unknown]
  - Malignant neoplasm progression [Unknown]
  - Ascites [Recovering/Resolving]
  - Metastases to peritoneum [Unknown]
  - Metastases to lymph nodes [Unknown]
  - Metastases to liver [Unknown]
  - Drug ineffective [Unknown]
  - Off label use [Unknown]
  - Disease progression [Unknown]
  - Therapeutic product effect incomplete [Unknown]
  - Drug ineffective for unapproved indication [Unknown]
  - Drug ineffective [Unknown]
  - Product use in unapproved indication [Unknown]

NARRATIVE: CASE EVENT DATE: 20170101
